FAERS Safety Report 15862915 (Version 1)
Quarter: 2019Q1

REPORT INFORMATION
  Report Type: Spontaneous
  Country: US (occurrence: US)
  Receive Date: 20190124
  Receipt Date: 20190124
  Transmission Date: 20190417
  Serious: No
  Sender: FDA-Public Use
  Company Number: US-009507513-1901USA002532

PATIENT
  Age: 93 Year
  Sex: Female

DRUGS (6)
  1. TRADJENTA [Suspect]
     Active Substance: LINAGLIPTIN
     Dosage: UNK
     Dates: start: 2018
  2. OMEPRAZOLE. [Concomitant]
     Active Substance: OMEPRAZOLE
     Dosage: UNK
  3. AMLODIPINE [Concomitant]
     Active Substance: AMLODIPINE BESYLATE
     Dosage: UNK
  4. METOPROLOL. [Concomitant]
     Active Substance: METOPROLOL
     Dosage: UNK
  5. JANUVIA [Suspect]
     Active Substance: SITAGLIPTIN PHOSPHATE
     Indication: DIABETES MELLITUS
     Dosage: 100 MILLIGRAM, QD
     Route: 048
     Dates: start: 201807
  6. ENALAPRIL [Suspect]
     Active Substance: ENALAPRIL
     Dosage: UNK
     Dates: start: 201807

REACTIONS (11)
  - Cardiac disorder [Recovered/Resolved]
  - Insomnia [Unknown]
  - Adverse drug reaction [Unknown]
  - Lip swelling [Unknown]
  - Product dispensing error [Unknown]
  - Arthralgia [Recovered/Resolved]
  - Blister [Not Recovered/Not Resolved]
  - Paraesthesia [Unknown]
  - Swelling face [Unknown]
  - Swollen tongue [Unknown]
  - Pain [Not Recovered/Not Resolved]

NARRATIVE: CASE EVENT DATE: 2018
